FAERS Safety Report 8621316-9 (Version None)
Quarter: 2012Q3

REPORT INFORMATION
  Report Type: 
  Country: None (occurrence: None)
  Receive Date: 20120824
  Receipt Date: 20120820
  Transmission Date: 20120928
  Serious: Yes (Hospitalization)
  Sender: FDA-Public Use
  Company Number: GB-PFIZER INC-2012203168

PATIENT
  Age: 77 Year
  Sex: Female

DRUGS (6)
  1. OMEPRAZOLE [Concomitant]
     Dosage: ONGOING
  2. LEVOTHYROXINE [Concomitant]
     Dosage: ONGOING
  3. LOSARTAN [Concomitant]
     Dosage: ONGOING
  4. PREGABALIN [Suspect]
     Dates: start: 20120622, end: 20120706
  5. SALBUTAMOL [Concomitant]
     Dosage: ONGOING
     Route: 055
  6. SPIRONOLACTONE [Concomitant]
     Dosage: ONGOING

REACTIONS (5)
  - SOMNOLENCE [None]
  - DIZZINESS [None]
  - FALL [None]
  - LOSS OF CONTROL OF LEGS [None]
  - HALLUCINATION, VISUAL [None]
